FAERS Safety Report 7391154-6 (Version None)
Quarter: 2011Q2

REPORT INFORMATION
  Report Type: 
  Country: None (occurrence: None)
  Receive Date: 20110404
  Receipt Date: 20100311
  Transmission Date: 20111010
  Serious: No
  Sender: FDA-Public Use
  Company Number: US-PFIZER INC-2010019868

PATIENT
  Sex: Male
  Weight: 90.7 kg

DRUGS (1)
  1. GENOTROPIN [Suspect]
     Indication: HYPOPITUITARISM
     Dosage: 0.2 MG, 1X/DAY
     Route: 058
     Dates: start: 20091204

REACTIONS (2)
  - INJECTION SITE PAIN [None]
  - APPLICATION SITE URTICARIA [None]
